FAERS Safety Report 24012449 (Version 1)
Quarter: 2024Q2

REPORT INFORMATION
  Report Type: Spontaneous
  Country: US (occurrence: US)
  Receive Date: 20240625
  Receipt Date: 20240625
  Transmission Date: 20240716
  Serious: Yes (Other)
  Sender: FDA-Public Use
  Company Number: US-BRISTOL-MYERS SQUIBB COMPANY-2024-100124

PATIENT
  Age: 65 Year
  Sex: Male

DRUGS (1)
  1. ORENCIA [Suspect]
     Active Substance: ABATACEPT
     Indication: Product used for unknown indication
     Dosage: DOSE: 125 MG/ML, FREQ: INJECT 125 MG/ML SUBCUTANEOUSLY?ONCE A WEEK
     Route: 058

REACTIONS (2)
  - Nasopharyngitis [Recovering/Resolving]
  - Atrial fibrillation [Unknown]
